FAERS Safety Report 8355847-6 (Version None)
Quarter: 2012Q2

REPORT INFORMATION
  Report Type: 
  Country: None (occurrence: None)
  Receive Date: 20120514
  Receipt Date: 20120502
  Transmission Date: 20120825
  Serious: Yes (Hospitalization, Other)
  Sender: FDA-Public Use
  Company Number: KR-BRISTOL-MYERS SQUIBB COMPANY-16541393

PATIENT
  Age: 75 Year
  Sex: Female

DRUGS (7)
  1. METFORMIN HCL [Suspect]
     Indication: DIABETES MELLITUS
     Dosage: STARTED 5YRS AGO
     Route: 048
  2. LINEZOLID [Suspect]
     Indication: WOUND INFECTION STAPHYLOCOCCAL
  3. ISONIAZID [Concomitant]
  4. RIFAMPIN [Concomitant]
  5. ETHAMBUTOL HYDROCHLORIDE [Concomitant]
  6. WARFARIN SODIUM [Concomitant]
     Indication: ATRIAL FIBRILLATION
  7. PYRAZINAMIDE [Concomitant]

REACTIONS (4)
  - TUBERCULOSIS [None]
  - LACTIC ACIDOSIS [None]
  - WOUND INFECTION [None]
  - FEMORAL NECK FRACTURE [None]
